FAERS Safety Report 22166150 (Version 1)
Quarter: 2023Q2

REPORT INFORMATION
  Report Type: Spontaneous
  Country: US (occurrence: US)
  Receive Date: 20230403
  Receipt Date: 20230403
  Transmission Date: 20230722
  Serious: Yes (Hospitalization, Other)
  Sender: FDA-Public Use
  Company Number: US-GLAXOSMITHKLINE-USCH2023AMR009604

PATIENT
  Age: 69 Year
  Sex: Male
  Weight: 71.565 kg

DRUGS (9)
  1. ROBITUSSIN NOS [Suspect]
     Active Substance: ACETAMINOPHEN\CHLORPHENIRAMINE HYDROCHLORIDE\DEXTROMETHORPHAN\GUAIFENESIN\PHENYLPROPANOLAMINE HYDROC
     Indication: Cough
     Dosage: UNK
     Dates: start: 202302
  2. PREDNISONE [Suspect]
     Active Substance: PREDNISONE
     Indication: Product used for unknown indication
     Dosage: 10 MG, QD
     Dates: start: 202302, end: 202302
  3. PREDNISONE [Suspect]
     Active Substance: PREDNISONE
     Dosage: 70 MG, QD
     Dates: start: 20230220
  4. NIVOLUMAB [Suspect]
     Active Substance: NIVOLUMAB
     Indication: Non-small cell lung cancer
     Dosage: 480 MG OVER 30 MINUTES
  5. PEXMETINIB [Suspect]
     Active Substance: PEXMETINIB
     Indication: Non-small cell lung cancer
     Dosage: UNK, BID
     Route: 048
     Dates: start: 20221115, end: 20230213
  6. PEXMETINIB [Suspect]
     Active Substance: PEXMETINIB
     Dosage: UNK
     Route: 048
     Dates: start: 20230306
  7. MUCINEX DM [Suspect]
     Active Substance: DEXTROMETHORPHAN HYDROBROMIDE\GUAIFENESIN
     Indication: Cough
     Dosage: UNK
     Dates: start: 202302
  8. CODEINE\GUAIFENESIN [Suspect]
     Active Substance: CODEINE\GUAIFENESIN
     Indication: Cough
     Dosage: UNK
     Dates: start: 202302
  9. TESSALON [Suspect]
     Active Substance: BENZONATATE
     Indication: Cough
     Dosage: UNK
     Dates: start: 202302

REACTIONS (3)
  - Pulmonary embolism [Recovered/Resolved with Sequelae]
  - Dizziness [Unknown]
  - Drug ineffective [Unknown]

NARRATIVE: CASE EVENT DATE: 20230201
